FAERS Safety Report 7507984-3 (Version None)
Quarter: 2011Q2

REPORT INFORMATION
  Report Type: 
  Country: None (occurrence: None)
  Receive Date: 20110527
  Receipt Date: 20110516
  Transmission Date: 20111010
  Serious: Yes (Hospitalization, Other)
  Sender: FDA-Public Use
  Company Number: US-JNJFOC-20090204083

PATIENT
  Age: 16 Year
  Sex: Female

DRUGS (9)
  1. TOPAMAX [Suspect]
     Route: 048
     Dates: start: 19980101, end: 20081101
  2. LYRICA [Concomitant]
     Indication: CONVULSION
  3. UNKNOWN MULTIPLE MEDICATION [Concomitant]
     Route: 065
  4. POLYCITRA [Concomitant]
     Indication: BLOOD POTASSIUM
     Route: 065
  5. LAMICTAL [Concomitant]
     Indication: CONVULSION
  6. ATIVAN [Concomitant]
     Indication: PRODUCT USED FOR UNKNOWN INDICATION
     Route: 065
  7. TOPIRAMATE [Suspect]
     Indication: CONVULSION
     Route: 048
  8. TOPAMAX [Suspect]
     Indication: CONVULSION
     Route: 048
     Dates: start: 20090201
  9. DEPAKENE [Concomitant]
     Indication: CONVULSION

REACTIONS (3)
  - ATELECTASIS [None]
  - BLOOD POTASSIUM DECREASED [None]
  - TRACHEOSTOMY [None]
